FAERS Safety Report 8416671-9 (Version None)
Quarter: 2012Q2

REPORT INFORMATION
  Report Type: 
  Country: None (occurrence: None)
  Receive Date: 20120606
  Receipt Date: 20120529
  Transmission Date: 20120825
  Serious: No
  Sender: FDA-Public Use
  Company Number: US-PFIZER INC-2012129082

PATIENT
  Sex: Female

DRUGS (6)
  1. PLAQUENIL [Suspect]
  2. PREMPRO [Concomitant]
     Dosage: 1.5 UNK, UNK
  3. SYNTHROID [Concomitant]
     Dosage: 115 UG, UNK
  4. ETANERCEPT [Concomitant]
     Dosage: 50 MG, WEEKLY
     Route: 058
  5. CELEBREX [Concomitant]
     Dosage: 200 MG, 2X/DAY
  6. DAYPRO [Suspect]

REACTIONS (1)
  - HYPERSENSITIVITY [None]
